FAERS Safety Report 15748280 (Version 1)
Quarter: 2018Q4

REPORT INFORMATION
  Report Type: Spontaneous
  Country: PT (occurrence: PT)
  Receive Date: 20181221
  Receipt Date: 20181221
  Transmission Date: 20190205
  Serious: Yes (Hospitalization)
  Sender: FDA-Public Use
  Company Number: PT-PFIZER INC-2018519731

PATIENT
  Sex: Male

DRUGS (4)
  1. MIODIA [Interacting]
     Active Substance: CYCLOBENZAPRINE
     Indication: BACK PAIN
     Dosage: 15 MG, UNK
     Route: 048
  2. METOCLOPRAMIDE. [Interacting]
     Active Substance: METOCLOPRAMIDE
     Route: 065
  3. PREGABALIN. [Suspect]
     Active Substance: PREGABALIN
     Route: 065
  4. METAMIZOLE [Interacting]
     Active Substance: METAMIZOLE
     Route: 065

REACTIONS (4)
  - Drug interaction [Unknown]
  - Ataxia [Unknown]
  - Dysarthria [Unknown]
  - Dyskinesia [Unknown]
